FAERS Safety Report 21596702 (Version 3)
Quarter: 2022Q4

REPORT INFORMATION
  Report Type: Spontaneous
  Country: JP (occurrence: JP)
  Receive Date: 20221115
  Receipt Date: 20221125
  Transmission Date: 20230113
  Serious: Yes (Other)
  Sender: FDA-Public Use
  Company Number: JP-PFIZER INC-202200805144

PATIENT
  Age: 74 Year
  Sex: Male

DRUGS (3)
  1. LEUCOVORIN [Suspect]
     Active Substance: LEUCOVORIN
     Dosage: 335 MG/BODY
     Dates: start: 201801
  2. IRINOTECAN HYDROCHLORIDE [Suspect]
     Active Substance: IRINOTECAN HYDROCHLORIDE
     Dosage: 245 MG/BODY
     Dates: start: 201801
  3. FLUOROURACIL [Suspect]
     Active Substance: FLUOROURACIL
     Dosage: 675 MG/BODY
     Dates: start: 201801

REACTIONS (2)
  - Altered state of consciousness [Recovering/Resolving]
  - Hyperammonaemia [Recovering/Resolving]

NARRATIVE: CASE EVENT DATE: 20180101
